FAERS Safety Report 4817023-0 (Version None)
Quarter: 2005Q4

REPORT INFORMATION
  Report Type: 
  Country: None (occurrence: None)
  Receive Date: 20051101
  Receipt Date: 20051020
  Transmission Date: 20060501
  Serious: Yes (Hospitalization)
  Sender: FDA-Public Use
  Company Number: 420490

PATIENT
  Age: 73 Year
  Sex: Male

DRUGS (1)
  1. CARVEDILOL [Suspect]
     Indication: CARDIAC FAILURE CHRONIC
     Dosage: 10MG PER DAY
     Route: 048
     Dates: start: 20020410

REACTIONS (1)
  - CARDIAC FAILURE [None]
